FAERS Safety Report 9198691 (Version 1)
Quarter: 2013Q1

REPORT INFORMATION
  Report Type: Spontaneous
  Country: US (occurrence: None)
  Receive Date: 20130327
  Receipt Date: 20130327
  Transmission Date: 20140127
  Serious: Yes (Other)
  Sender: FDA-Public Use
  Company Number: None

PATIENT
  Sex: Female

DRUGS (3)
  1. GENERIC WELLBUTRIN XL [Suspect]
     Indication: MAJOR DEPRESSION
  2. GENERIC WELLBUTRIN XL [Suspect]
     Indication: POST-TRAUMATIC STRESS DISORDER
  3. GENERIC WELLBUTRIN XL [Suspect]
     Indication: ANXIETY

REACTIONS (4)
  - Nausea [None]
  - Vomiting [None]
  - Depression [None]
  - Product substitution issue [None]
